FAERS Safety Report 15439568 (Version 1)
Quarter: 2018Q3

REPORT INFORMATION
  Report Type: Spontaneous
  Country: US (occurrence: US)
  Receive Date: 20180924
  Receipt Date: 20180924
  Transmission Date: 20181010
  Serious: Yes (Hospitalization)
  Sender: FDA-Public Use
  Company Number: None

PATIENT
  Age: 47 Year
  Sex: Female

DRUGS (4)
  1. SYNTHROID [Concomitant]
     Active Substance: LEVOTHYROXINE SODIUM
  2. ACYCLOVIR. [Concomitant]
     Active Substance: ACYCLOVIR
  3. TRETINOIN CAP 10MG [Suspect]
     Active Substance: TRETINOIN
     Dates: start: 20180813
  4. MEDROXY PROGESTERONE [Concomitant]

REACTIONS (1)
  - Acute promyelocytic leukaemia [None]

NARRATIVE: CASE EVENT DATE: 20180813
